FAERS Safety Report 7026374-3 (Version None)
Quarter: 2010Q4

REPORT INFORMATION
  Report Type: 
  Country: None (occurrence: None)
  Receive Date: 20101004
  Receipt Date: 20100922
  Transmission Date: 20110411
  Serious: Yes (Other)
  Sender: FDA-Public Use
  Company Number: JP-PFIZER INC-2010117701

PATIENT
  Age: 82 Year
  Sex: Female

DRUGS (3)
  1. LYRICA [Suspect]
     Indication: POST HERPETIC NEURALGIA
     Dosage: 75 MG, 2X/DAY
     Route: 048
     Dates: start: 20100623
  2. FLUVASTATIN [Concomitant]
     Route: 048
  3. IRBESARTAN [Concomitant]
     Route: 048

REACTIONS (2)
  - DYSSTASIA [None]
  - VISUAL IMPAIRMENT [None]
